FAERS Safety Report 19269705 (Version 1)
Quarter: 2021Q2

REPORT INFORMATION
  Report Type: Spontaneous
  Country: US (occurrence: US)
  Receive Date: 20210518
  Receipt Date: 20210518
  Transmission Date: 20210717
  Serious: No
  Sender: FDA-Public Use
  Company Number: US-TEVA-2021-US-1907130

PATIENT
  Sex: Female

DRUGS (1)
  1. TAMOXIFEN CITRATE TEVA [Suspect]
     Active Substance: TAMOXIFEN CITRATE
     Route: 065
     Dates: start: 2019

REACTIONS (2)
  - Large intestine polyp [Not Recovered/Not Resolved]
  - Abdominal discomfort [Unknown]
